FAERS Safety Report 22374671 (Version 2)
Quarter: 2023Q2

REPORT INFORMATION
  Report Type: Spontaneous
  Country: US (occurrence: None)
  Receive Date: 20230526
  Receipt Date: 20230531
  Transmission Date: 20230721
  Serious: Yes (Death)
  Sender: FDA-Public Use
  Company Number: US-ROCHE-3357198

PATIENT
  Sex: Male

DRUGS (3)
  1. ESBRIET [Suspect]
     Active Substance: PIRFENIDONE
     Indication: Idiopathic pulmonary fibrosis
     Route: 048
     Dates: start: 20220809, end: 202305
  2. ASPIRIN [Concomitant]
     Active Substance: ASPIRIN
  3. PIRFENIDONE [Concomitant]
     Active Substance: PIRFENIDONE

REACTIONS (1)
  - Death [Fatal]
